FAERS Safety Report 18603418 (Version 4)
Quarter: 2021Q3

REPORT INFORMATION
  Report Type: Other
  Country: JP (occurrence: JP)
  Receive Date: 20201210
  Receipt Date: 20210729
  Transmission Date: 20211014
  Serious: Yes (Life-Threatening, Hospitalization, Other)
  Sender: FDA-Public Use
  Company Number: JP-ROCHE-2729693

PATIENT
  Age: 50 Year
  Sex: Female
  Weight: 37 kg

DRUGS (4)
  1. TECENTRIQ [Suspect]
     Active Substance: ATEZOLIZUMAB
     Indication: TRIPLE NEGATIVE BREAST CANCER
     Dosage: TWICE/FOUR WEEKS
     Route: 041
     Dates: start: 20200622, end: 20200929
  2. ABRAXANE [Suspect]
     Active Substance: PACLITAXEL
     Indication: TRIPLE NEGATIVE BREAST CANCER
     Dosage: DOSAGE WAS UNCERTAIN.
     Route: 041
     Dates: start: 20200622, end: 20201006
  3. ABRAXANE [Concomitant]
     Active Substance: PACLITAXEL
     Indication: TRIPLE NEGATIVE BREAST CANCER
     Route: 041
     Dates: start: 20200622, end: 20201006
  4. GRANISETRON [Concomitant]
     Active Substance: GRANISETRON
     Dosage: DOSAGE IS UNCERTAIN.
     Route: 065
     Dates: start: 20200622, end: 20201006

REACTIONS (3)
  - Haemorrhage [Recovering/Resolving]
  - Hepatitis [Recovered/Resolved]
  - Pain [Recovering/Resolving]

NARRATIVE: CASE EVENT DATE: 202010
